FAERS Safety Report 5368380-0 (Version None)
Quarter: 2007Q2

REPORT INFORMATION
  Report Type: 
  Country: None (occurrence: None)
  Receive Date: 20070622
  Receipt Date: 20070622
  Transmission Date: 20071010
  Serious: Yes (Hospitalization, Other)
  Sender: FDA-Public Use
  Company Number: None

PATIENT
  Age: 24 Year
  Sex: Male

DRUGS (1)
  1. DATOMYCINQ DAPTOMYCIN [Suspect]
     Indication: ENDOCARDITIS
     Dosage: 300 MG DAILY IV
     Route: 042
     Dates: start: 20070618, end: 20070620

REACTIONS (4)
  - GENERALISED ERYTHEMA [None]
  - PERIORBITAL OEDEMA [None]
  - PRURITUS [None]
  - SWELLING [None]
